FAERS Safety Report 10043551 (Version 2)
Quarter: 2014Q2

REPORT INFORMATION
  Report Type: Spontaneous
  Country: US (occurrence: US)
  Receive Date: 20140328
  Receipt Date: 20140421
  Transmission Date: 20141212
  Serious: No
  Sender: FDA-Public Use
  Company Number: US-PFIZER INC-2014085826

PATIENT
  Sex: Male

DRUGS (8)
  1. BENZYLPENICILLIN POTASSIUM [Suspect]
     Dosage: UNK
  2. HEPARIN SODIUM [Suspect]
     Dosage: UNK
  3. MORPHINE SULFATE [Suspect]
     Dosage: UNK
  4. OXYCONTIN [Suspect]
     Dosage: UNK
  5. TYLENOL W/CODEINE NO. 3 [Suspect]
     Dosage: UNK
  6. PRAVACHOL [Suspect]
     Dosage: UNK
  7. HYDROCODONE W/ACETAMINOPHEN [Suspect]
     Dosage: UNK
  8. PERCOCET [Suspect]
     Dosage: UNK

REACTIONS (1)
  - Drug hypersensitivity [Unknown]
